FAERS Safety Report 4734199-4 (Version None)
Quarter: 2005Q3

REPORT INFORMATION
  Report Type: 
  Country: None (occurrence: None)
  Receive Date: 20050729
  Receipt Date: 20050711
  Transmission Date: 20060218
  Serious: Yes (Hospitalization)
  Sender: FDA-Public Use
  Company Number: USA0507102493

PATIENT
  Age: 64 Year
  Sex: Female

DRUGS (1)
  1. FORTEO [Suspect]
     Indication: RHEUMATOID ARTHRITIS
     Dates: start: 20050609

REACTIONS (8)
  - BACK INJURY [None]
  - BLOOD POTASSIUM DECREASED [None]
  - CONDITION AGGRAVATED [None]
  - DRY MOUTH [None]
  - DYSPHAGIA [None]
  - FALL [None]
  - NAUSEA [None]
  - SPINAL COMPRESSION FRACTURE [None]
